FAERS Safety Report 13924198 (Version 1)
Quarter: 2017Q3

REPORT INFORMATION
  Report Type: Spontaneous
  Country: US (occurrence: US)
  Receive Date: 20170831
  Receipt Date: 20170831
  Transmission Date: 20171127
  Serious: Yes (Life-Threatening, Other)
  Sender: FDA-Public Use
  Company Number: US-JNJFOC-20170824609

PATIENT
  Age: 24 Year
  Sex: Female

DRUGS (2)
  1. LOPERAMIDE HYDROCHLORIDE. [Suspect]
     Active Substance: LOPERAMIDE HYDROCHLORIDE
     Route: 048
  2. LOPERAMIDE HYDROCHLORIDE. [Suspect]
     Active Substance: LOPERAMIDE HYDROCHLORIDE
     Indication: DRUG USE DISORDER
     Route: 048

REACTIONS (9)
  - Somnolence [Unknown]
  - Tachycardia [Unknown]
  - Respiratory arrest [Unknown]
  - Lethargy [Unknown]
  - Pyrexia [Unknown]
  - Hypoxia [Unknown]
  - Respiratory depression [Unknown]
  - Drug abuse [Unknown]
  - Overdose [Unknown]
